FAERS Safety Report 7136600-8 (Version None)
Quarter: 2010Q4

REPORT INFORMATION
  Report Type: 
  Country: None (occurrence: None)
  Receive Date: 20101206
  Receipt Date: 20101124
  Transmission Date: 20110411
  Serious: Yes (Other)
  Sender: FDA-Public Use
  Company Number: US-BAYER-2010-001220

PATIENT
  Sex: Female

DRUGS (2)
  1. YASMIN [Suspect]
  2. DROSPIRENONE + ETHINYLESTRADIOL 20A?G (24+4) [Suspect]

REACTIONS (1)
  - GALLBLADDER INJURY [None]
